FAERS Safety Report 9785881 (Version 3)
Quarter: 2014Q2

REPORT INFORMATION
  Report Type: Spontaneous
  Country: US (occurrence: US)
  Receive Date: 20131227
  Receipt Date: 20140514
  Transmission Date: 20141212
  Serious: Yes (Other)
  Sender: FDA-Public Use
  Company Number: US-ASTRAZENECA-2013SE27475

PATIENT
  Age: 21914 Day
  Sex: Female
  Weight: 81.6 kg

DRUGS (16)
  1. NEXIUM [Suspect]
     Indication: GASTROOESOPHAGEAL REFLUX DISEASE
     Route: 048
     Dates: start: 2006
  2. NEXIUM [Suspect]
     Indication: GASTROOESOPHAGEAL REFLUX DISEASE
     Route: 048
     Dates: start: 20080130
  3. NEXIUM [Suspect]
     Indication: GASTROOESOPHAGEAL REFLUX DISEASE
     Route: 048
     Dates: start: 20090112
  4. RANTIDINE [Concomitant]
     Dates: start: 200511, end: 2006
  5. METFORMIN [Concomitant]
     Indication: DIABETES MELLITUS
     Dates: start: 20100622
  6. LISINOPRIL [Concomitant]
     Indication: BLOOD PRESSURE ABNORMAL
  7. FUROSEMIDE [Concomitant]
     Indication: BLOOD CHOLESTEROL ABNORMAL
  8. LOSARTAN [Concomitant]
     Indication: BLOOD CHOLESTEROL ABNORMAL
  9. ASPIRIN [Concomitant]
     Indication: CARDIAC DISORDER
  10. ATORVASTATIN [Concomitant]
     Indication: BLOOD CHOLESTEROL ABNORMAL
  11. SYNTHROID [Concomitant]
     Indication: BLOOD CHOLESTEROL ABNORMAL
  12. CITALOPRAM [Concomitant]
  13. CITALOPRAM [Concomitant]
     Dates: start: 20081212
  14. SIMVASTATIN [Concomitant]
  15. HYDROCODONE [Concomitant]
  16. TUSSIONEX [Concomitant]

REACTIONS (6)
  - Cerebrovascular accident [Unknown]
  - Osteoporosis [Unknown]
  - Wrist fracture [Unknown]
  - Bone disorder [Unknown]
  - Fall [Unknown]
  - Diabetes mellitus [Unknown]
